FAERS Safety Report 8256563-1 (Version None)
Quarter: 2012Q2

REPORT INFORMATION
  Report Type: 
  Country: None (occurrence: None)
  Receive Date: 20120403
  Receipt Date: 20120329
  Transmission Date: 20120825
  Serious: Yes (Hospitalization)
  Sender: FDA-Public Use
  Company Number: BE-PFIZER INC-2012044838

PATIENT
  Age: 33 Year
  Sex: Female
  Weight: 51.7 kg

DRUGS (9)
  1. MEDROL [Concomitant]
     Dosage: 8 MG, 1X/DAY
     Route: 048
     Dates: start: 20120312
  2. PANTOPRAZOLE [Concomitant]
     Indication: GASTRIC ULCER
     Dosage: 40 MG, 2X/DAY
     Route: 048
     Dates: start: 20110614
  3. MEDROL [Concomitant]
     Dosage: 16 MG, 1X/DAY
     Route: 048
     Dates: start: 20120305, end: 20120311
  4. SULFAMETHOXAZOLE AND TRIMETHOPRIM DOUBLE STRENGTH [Concomitant]
     Indication: INFECTION PROPHYLAXIS
     Dosage: UNK
     Dates: start: 20110726
  5. ZOLPIDEM TARTRATE [Concomitant]
     Indication: SLEEP DISORDER
     Dosage: 10 MG, AS NEEDED
     Route: 048
  6. LORAZEPAM [Concomitant]
     Indication: SLEEP DISORDER
     Dosage: 2 MG, AS NEEDED
     Route: 048
  7. MEDROL [Concomitant]
     Dosage: 32 MG, 1X/DAY
     Dates: start: 20120224, end: 20120304
  8. CRIZOTINIB [Suspect]
     Indication: ANAPLASTIC LARGE CELL LYMPHOMA T- AND NULL-CELL TYPES
     Dosage: 250 MG, 2X/DAY
     Route: 048
     Dates: start: 20110616
  9. MEDROL [Concomitant]
     Indication: GRAFT VERSUS HOST DISEASE
     Dosage: 64 MG, 1X/DAY
     Route: 048
     Dates: start: 20120216, end: 20120224

REACTIONS (3)
  - VISION BLURRED [None]
  - GAIT DISTURBANCE [None]
  - HEPATOTOXICITY [None]
